FAERS Safety Report 7292518-1 (Version None)
Quarter: 2011Q1

REPORT INFORMATION
  Report Type: 
  Country: None (occurrence: None)
  Receive Date: 20110215
  Receipt Date: 20110209
  Transmission Date: 20110831
  Serious: Yes (Death)
  Sender: FDA-Public Use
  Company Number: JP-ASTELLAS-2011JP000979

PATIENT
  Age: 15 Year
  Sex: Male
  Weight: 34 kg

DRUGS (2)
  1. PROGRAF [Suspect]
     Route: 065
  2. ITRACONAZOLE [Concomitant]
     Route: 065

REACTIONS (1)
  - FUSARIUM INFECTION [None]
